FAERS Safety Report 14802814 (Version 2)
Quarter: 2018Q2

REPORT INFORMATION
  Report Type: Spontaneous
  Country: DE (occurrence: DE)
  Receive Date: 20180424
  Receipt Date: 20180502
  Transmission Date: 20180711
  Serious: Yes (Life-Threatening, Hospitalization, Disabling, Other)
  Sender: FDA-Public Use
  Company Number: DE-PFIZER INC-2018163949

PATIENT
  Age: 53 Year
  Sex: Female

DRUGS (13)
  1. TIZANIDIN [Suspect]
     Active Substance: TIZANIDINE HYDROCHLORIDE
     Indication: MULTIPLE SCLEROSIS
     Dosage: 2 MG 1-1-1
     Route: 048
     Dates: start: 201711, end: 201712
  2. CALCIUM + VITAMIN D 880 MG/1000 IE [Concomitant]
     Dosage: DAILY DOSE: 1 DF DOSAGE FORM EVERY DAYS
     Dates: start: 201506
  3. BACLOFEN. [Concomitant]
     Active Substance: BACLOFEN
     Dosage: DAILY DOSE: 60 MG MILLGRAM(S) EVERY DAYS
     Dates: start: 201612
  4. AMITRIPTYLIN [Suspect]
     Active Substance: AMITRIPTYLINE
     Dosage: 25 MG, 1X/DAY (0-0-0-1)
     Route: 048
     Dates: start: 201711, end: 201712
  5. TILIDINE [Concomitant]
     Active Substance: TILIDINE
     Dosage: DAILY DOSE: 3 DF DOSAGE FORM EVERY DAYS
     Dates: start: 201711, end: 201711
  6. MAGNESIUM [Concomitant]
     Active Substance: MAGNESIUM
     Dosage: 400 MG, UNK
  7. FAMPRIDINE [Concomitant]
     Active Substance: DALFAMPRIDINE
     Dosage: 10 MG, INCONSTANT
     Dates: end: 201711
  8. TROSPIUM CHLORIDE. [Concomitant]
     Active Substance: TROSPIUM CHLORIDE
     Dosage: DAILY DOSE: 30 MG MILLGRAM(S) EVERY DAYS
     Dates: start: 201701
  9. VENLAFAXINE HCL [Suspect]
     Active Substance: VENLAFAXINE HYDROCHLORIDE
     Dosage: UNK
     Route: 048
     Dates: start: 201711, end: 201712
  10. TERIFLUNOMIDE [Suspect]
     Active Substance: TERIFLUNOMIDE
     Indication: MULTIPLE SCLEROSIS
     Dosage: 14 MG, UNK
     Route: 048
     Dates: start: 201506
  11. GABAPENTIN. [Concomitant]
     Active Substance: GABAPENTIN
     Dosage: DAILY DOSE: 1800 MG MILLGRAM(S) EVERY DAYS
     Dates: start: 201704
  12. PANTOPRAZOL [Concomitant]
     Active Substance: PANTOPRAZOLE SODIUM
     Dosage: DAILY DOSE: 40 MG MILLGRAM(S) EVERY DAYS, USED FOR LONGER TIME
  13. CLEXANE [Concomitant]
     Active Substance: ENOXAPARIN SODIUM
     Dosage: DAILY DOSE: 40 MG MILLGRAM(S) EVERY DAYS
     Dates: start: 201709

REACTIONS (2)
  - Drug-induced liver injury [Unknown]
  - Hepatic failure [Recovered/Resolved with Sequelae]

NARRATIVE: CASE EVENT DATE: 20180101
